FAERS Safety Report 9940028 (Version 1)
Quarter: 2014Q1

REPORT INFORMATION
  Report Type: Report from Study
  Country: US (occurrence: US)
  Receive Date: 20140303
  Receipt Date: 20140303
  Transmission Date: 20141002
  Serious: No
  Sender: FDA-Public Use
  Company Number: US-ABBVIE-13P-163-1035953-00

PATIENT
  Sex: Female
  Weight: 85.81 kg

DRUGS (10)
  1. HUMIRA PEN [Suspect]
     Indication: RHEUMATOID ARTHRITIS
     Route: 058
     Dates: start: 2009, end: 201207
  2. HUMIRA PEN [Suspect]
     Route: 058
     Dates: start: 201207
  3. ALDACTONE [Concomitant]
     Indication: BLOOD POTASSIUM DECREASED
  4. METHOTREXATE [Concomitant]
     Indication: PRODUCT USED FOR UNKNOWN INDICATION
  5. SULFASALAZINE [Concomitant]
     Indication: PRODUCT USED FOR UNKNOWN INDICATION
  6. VENLAFAXINE [Concomitant]
     Indication: PRODUCT USED FOR UNKNOWN INDICATION
  7. FOLIC ACID [Concomitant]
     Indication: PRODUCT USED FOR UNKNOWN INDICATION
  8. CLONAZEPAM [Concomitant]
     Indication: RESTLESS LEGS SYNDROME
  9. DETROL [Concomitant]
     Indication: URINARY INCONTINENCE
  10. PRILOSEC [Concomitant]
     Indication: GASTROOESOPHAGEAL REFLUX DISEASE

REACTIONS (1)
  - Drug ineffective [Recovered/Resolved]
